FAERS Safety Report 7341858-6 (Version None)
Quarter: 2011Q1

REPORT INFORMATION
  Report Type: 
  Country: None (occurrence: None)
  Receive Date: 20110309
  Receipt Date: 20110307
  Transmission Date: 20110831
  Serious: Yes (Death, Other)
  Sender: FDA-Public Use
  Company Number: US-AMGEN-USASP2011012451

PATIENT
  Age: 69 Year
  Sex: Female

DRUGS (2)
  1. NPLATE [Suspect]
     Indication: IDIOPATHIC THROMBOCYTOPENIC PURPURA
     Dates: start: 20101015
  2. CORTICOSTEROIDS [Concomitant]

REACTIONS (4)
  - NEOPLASM MALIGNANT [None]
  - DRUG INEFFECTIVE [None]
  - DEATH [None]
  - MYELODYSPLASTIC SYNDROME [None]
